FAERS Safety Report 23922020 (Version 3)
Quarter: 2024Q2

REPORT INFORMATION
  Report Type: Spontaneous
  Country: US (occurrence: US)
  Receive Date: 20240531
  Receipt Date: 20240603
  Transmission Date: 20240717
  Serious: Yes (Other)
  Sender: FDA-Public Use
  Company Number: US-ABBVIE-5779883

PATIENT
  Age: 84 Year
  Sex: Male

DRUGS (1)
  1. LINZESS [Suspect]
     Active Substance: LINACLOTIDE
     Indication: Constipation
     Dosage: FORM STRENGTH: 72 MICROGRAM?LAST ADMIN DATE: 2024
     Route: 048
     Dates: start: 202405

REACTIONS (4)
  - Blindness unilateral [Unknown]
  - Pruritus [Not Recovered/Not Resolved]
  - Skin haemorrhage [Unknown]
  - Visual impairment [Not Recovered/Not Resolved]

NARRATIVE: CASE EVENT DATE: 20240501
